FAERS Safety Report 15152355 (Version 1)
Quarter: 2018Q3

REPORT INFORMATION
  Report Type: Spontaneous
  Country: FR (occurrence: FR)
  Receive Date: 20180717
  Receipt Date: 20180717
  Transmission Date: 20181010
  Serious: Yes (Death, Life-Threatening, Hospitalization)
  Sender: FDA-Public Use
  Company Number: FR-TEVA-2018-FR-926035

PATIENT
  Age: 91 Year
  Sex: Female

DRUGS (10)
  1. OLANZAPINE. [Suspect]
     Active Substance: OLANZAPINE
     Indication: SENILE PSYCHOSIS
     Dosage: 10 MILLIGRAM DAILY;
     Route: 048
     Dates: start: 20180405, end: 20180525
  2. VENTOLINE [Concomitant]
     Active Substance: ALBUTEROL
  3. FLECAINE [Concomitant]
     Active Substance: FLECAINIDE
  4. MIRTAZAPINE. [Concomitant]
     Active Substance: MIRTAZAPINE
  5. CLARITHROMYCINE [Concomitant]
     Active Substance: CLARITHROMYCIN
  6. SYMBICORT [Concomitant]
     Active Substance: BUDESONIDE\FORMOTEROL FUMARATE DIHYDRATE
  7. LEVOTHYROXINE SODIQUE [Concomitant]
     Active Substance: LEVOTHYROXINE SODIUM
  8. XANAX [Concomitant]
     Active Substance: ALPRAZOLAM
  9. TAZOCILLINE [Concomitant]
     Active Substance: PIPERACILLIN SODIUM\TAZOBACTAM SODIUM
  10. CANDESARTAN CILEXETIL. [Concomitant]
     Active Substance: CANDESARTAN CILEXETIL

REACTIONS (2)
  - Death [Fatal]
  - Neuroleptic malignant syndrome [Recovering/Resolving]

NARRATIVE: CASE EVENT DATE: 20180523
